FAERS Safety Report 14230258 (Version 2)
Quarter: 2017Q4

REPORT INFORMATION
  Report Type: Report from Study
  Country: JP (occurrence: JP)
  Receive Date: 20171128
  Receipt Date: 20171208
  Transmission Date: 20180321
  Serious: Yes (Hospitalization)
  Sender: FDA-Public Use
  Company Number: JP-ROCHE-2032355

PATIENT
  Age: 68 Year
  Sex: Female

DRUGS (56)
  1. TRASTUZUMAB. [Suspect]
     Active Substance: TRASTUZUMAB
     Route: 041
     Dates: start: 20150521
  2. DOCETAXEL. [Suspect]
     Active Substance: DOCETAXEL
     Indication: HER-2 POSITIVE BREAST CANCER
     Route: 041
     Dates: start: 20150430, end: 20150701
  3. FRANDOL S [Concomitant]
     Active Substance: ISOSORBIDE DINITRATE
     Dosage: DOSAGE IS UNCERTAIN.
     Route: 062
     Dates: end: 20161105
  4. ATORVASTATIN [Concomitant]
     Active Substance: ATORVASTATIN
     Indication: HYPERLIPIDAEMIA
     Route: 048
  5. WINTERMIN [Concomitant]
     Active Substance: PROMAZINE
     Dosage: DOSAGE IS UNCERTAIN.
     Route: 048
     Dates: end: 20150609
  6. HACHIAZULE [Concomitant]
     Dosage: DOSAGE IS UNCERTAIN.
     Route: 049
     Dates: start: 20150521, end: 20150528
  7. DERMOVATE [Concomitant]
     Active Substance: CLOBETASOL
     Dosage: DOSAGE IS UNCERTAIN.
     Route: 003
     Dates: start: 20160127
  8. LEVOFLOXACIN HEMIHYDRATE [Concomitant]
     Active Substance: LEVOFLOXACIN
     Dosage: DOSAGE IS UNCERTAIN.
     Route: 048
     Dates: start: 20170123, end: 20170129
  9. MUCODYNE [Concomitant]
     Active Substance: CARBOCYSTEINE
     Dosage: DOSAGE IS UNCERTAIN.
     Route: 048
     Dates: start: 20170123, end: 20170129
  10. CEFCAPENE PIVOXIL HYDROCHLORIDE HYDRATE [Concomitant]
     Active Substance: CEFCAPENE PIVOXIL HYDROCHLORIDE HYDRATE
     Dosage: DOSAGE IS UNCERTAIN.
     Route: 065
     Dates: start: 20170711, end: 20170715
  11. RINDERON VG [Concomitant]
     Active Substance: BETAMETHASONE VALERATE\GENTAMICIN SULFATE
     Dosage: DOSAGE IS UNCERTAIN.
     Route: 003
     Dates: start: 20151216
  12. HACHIAZULE [Concomitant]
     Dosage: DOSAGE IS UNCERTAIN.
     Route: 049
     Dates: start: 20150506, end: 20150513
  13. CELESTAMINE (JAPAN) [Concomitant]
     Active Substance: BETAMETHASONE\DEXCHLORPHENIRAMINE MALEATE
     Dosage: DOSAGE IS UNCERTAIN.
     Route: 048
     Dates: start: 20170119, end: 20170123
  14. PERTUZUMAB. [Suspect]
     Active Substance: PERTUZUMAB
     Route: 041
     Dates: start: 20150521
  15. DECADRON [Concomitant]
     Active Substance: DEXAMETHASONE
     Dosage: DOSAGE IS UNCERTAIN.
     Route: 048
     Dates: start: 20150501, end: 20150703
  16. RINDERON VG [Concomitant]
     Active Substance: BETAMETHASONE VALERATE\GENTAMICIN SULFATE
     Dosage: DOSAGE IS UNCERTAIN.
     Route: 003
     Dates: start: 20150506, end: 20151013
  17. RINDERON VG [Concomitant]
     Active Substance: BETAMETHASONE VALERATE\GENTAMICIN SULFATE
     Dosage: DOSAGE IS UNCERTAIN.
     Route: 003
     Dates: start: 20150618, end: 20151013
  18. ALESION [Concomitant]
     Active Substance: EPINASTINE HYDROCHLORIDE
     Dosage: DOSAGE IS UNCERTAIN.
     Route: 065
     Dates: start: 20150614, end: 20150621
  19. LEVOFLOXACIN HEMIHYDRATE [Concomitant]
     Active Substance: LEVOFLOXACIN
     Dosage: DOSAGE IS UNCERTAIN.
     Route: 048
     Dates: start: 20160803, end: 20160810
  20. GRACEVIT [Concomitant]
     Active Substance: SITAFLOXACIN
     Dosage: DOSAGE IS UNCERTAIN.
     Route: 048
     Dates: start: 20170119, end: 20170123
  21. LORATADINE. [Concomitant]
     Active Substance: LORATADINE
     Dosage: DOSAGE IS UNCERTAIN.
     Route: 048
     Dates: end: 20150609
  22. LOXOPROFEN [Concomitant]
     Active Substance: LOXOPROFEN
     Dosage: DOSAGE IS UNCERTAIN.
     Route: 048
     Dates: start: 20150501, end: 20150609
  23. TOCLASE [Concomitant]
     Active Substance: PENTOXYVERINE
     Dosage: DOSAGE IS UNCERTAIN.
     Route: 048
     Dates: start: 20160805, end: 20160807
  24. BISOLVON [Concomitant]
     Active Substance: BROMHEXINE HYDROCHLORIDE
     Dosage: DOSAGE IS UNCERTAIN.
     Route: 048
     Dates: start: 20170119, end: 20170123
  25. CELESTAMINE (JAPAN) [Concomitant]
     Active Substance: BETAMETHASONE\DEXCHLORPHENIRAMINE MALEATE
     Dosage: DOSAGE IS UNCERTAIN.
     Route: 048
     Dates: start: 20170128, end: 20170203
  26. SIGMART [Concomitant]
     Active Substance: NICORANDIL
     Dosage: DOSAGE IS UNCERTAIN.
     Route: 065
     Dates: start: 20170915, end: 20170919
  27. SINGULAIR [Concomitant]
     Active Substance: MONTELUKAST SODIUM
     Dosage: DOSAGE IS UNCERTAIN.
     Route: 048
     Dates: end: 20161105
  28. SOLANAX [Concomitant]
     Active Substance: ALPRAZOLAM
     Dosage: DOSAGE IS UNCERTAIN.
     Route: 048
     Dates: start: 20150504, end: 20150529
  29. TRAVELMIN (CAFFEINE/DIPHENHYDRAMINE HYDROCHLORIDE/HYOSCINE HYDROBROMID [Concomitant]
     Dosage: DOSAGE IS UNCERTAIN.
     Route: 065
     Dates: start: 20160118, end: 20160125
  30. TOCLASE [Concomitant]
     Active Substance: PENTOXYVERINE
     Dosage: DOSAGE IS UNCERTAIN.
     Route: 048
     Dates: start: 20160714, end: 20160727
  31. CODEINE PHOSPHATE [Concomitant]
     Active Substance: CODEINE PHOSPHATE
     Dosage: DOSAGE IS UNCERTAIN.
     Route: 048
     Dates: start: 20170123, end: 20170129
  32. TRASTUZUMAB. [Suspect]
     Active Substance: TRASTUZUMAB
     Indication: HER-2 POSITIVE BREAST CANCER
     Route: 041
     Dates: start: 20150430, end: 20150430
  33. LURICUL VG [Concomitant]
     Dosage: DOSAGE IS UNCERTAIN.
     Route: 061
     Dates: end: 20150609
  34. RISPERIDONE. [Concomitant]
     Active Substance: RISPERIDONE
     Indication: SOMATIC SYMPTOM DISORDER
     Route: 048
  35. AKIRIDEN [Concomitant]
     Active Substance: BIPERIDEN
     Dosage: DOSAGE IS UNCERTAIN.
     Route: 048
     Dates: end: 20150609
  36. HIRUDOID CREAM [Concomitant]
     Dosage: DOSAGE IS UNCERTAIN.
     Route: 003
     Dates: start: 20150701, end: 20151013
  37. TOCLASE [Concomitant]
     Active Substance: PENTOXYVERINE
     Dosage: DOSAGE IS UNCERTAIN.
     Route: 048
     Dates: start: 20160511, end: 20160514
  38. CARBOCISTEINE [Concomitant]
     Active Substance: CARBOCYSTEINE
     Dosage: DOSAGE IS UNCERTAIN.
     Route: 048
     Dates: start: 20160714, end: 20160727
  39. SYMBICORT [Concomitant]
     Active Substance: BUDESONIDE\FORMOTEROL FUMARATE DIHYDRATE
     Dosage: DOSAGE IS UNCERTAIN.
     Route: 065
     Dates: start: 20160808, end: 20160907
  40. INFLUENZA HA VACCINE [Concomitant]
     Active Substance: INFLUENZA VIRUS VACCINE
     Dosage: DOSAGE IS UNCERTAIN.
     Route: 065
     Dates: start: 20161227, end: 20161227
  41. CODEINE PHOSPHATE [Concomitant]
     Active Substance: CODEINE PHOSPHATE
     Dosage: DOSAGE IS UNCERTAIN.
     Route: 048
     Dates: start: 20170128, end: 20170203
  42. PERTUZUMAB. [Suspect]
     Active Substance: PERTUZUMAB
     Indication: HER-2 POSITIVE BREAST CANCER
     Route: 041
     Dates: start: 20150430, end: 20150430
  43. TEARBALANCE [Concomitant]
     Active Substance: HYALURONATE SODIUM
     Indication: VISION BLURRED
     Dosage: PROPER QUANTITY
     Route: 047
  44. SELBEX [Concomitant]
     Active Substance: TEPRENONE
     Dosage: DOSAGE IS UNCERTAIN.
     Route: 048
     Dates: start: 20150506, end: 20151013
  45. PRIMPERAN [Concomitant]
     Active Substance: METOCLOPRAMIDE HYDROCHLORIDE
     Dosage: DOSAGE IS UNCERTAIN.
     Route: 048
     Dates: start: 20150526, end: 20150526
  46. LOXOPROFEN NA [Concomitant]
     Active Substance: LOXOPROFEN SODIUM
     Dosage: DOSAGE IS UNCERTAIN.
     Route: 061
     Dates: start: 20150526, end: 20150526
  47. DERMOVATE [Concomitant]
     Active Substance: CLOBETASOL
     Dosage: DOSAGE IS UNCERTAIN.
     Route: 003
     Dates: start: 20150708, end: 20151013
  48. CARBOCISTEINE [Concomitant]
     Active Substance: CARBOCYSTEINE
     Dosage: DOSAGE IS UNCERTAIN.
     Route: 048
     Dates: start: 20160511, end: 20160514
  49. DEXART [Concomitant]
     Active Substance: DEXAMETHASONE SODIUM PHOSPHATE
     Dosage: DOSAGE IS UNCERTAIN.
     Route: 065
     Dates: start: 20150430, end: 20150701
  50. FLOMOX (JAPAN) [Concomitant]
     Active Substance: CEFCAPENE PIVOXIL HYDROCHLORIDE HYDRATE
     Dosage: DOSAGE IS UNCERTAIN.
     Route: 048
     Dates: start: 20150610, end: 20150613
  51. FAMOTIDINE D [Concomitant]
     Active Substance: FAMOTIDINE
     Dosage: DOSAGE IS UNCERTAIN.
     Route: 048
     Dates: start: 20150506, end: 20151013
  52. CARBOCISTEINE [Concomitant]
     Active Substance: CARBOCYSTEINE
     Dosage: DOSAGE IS UNCERTAIN.
     Route: 048
     Dates: start: 20160805, end: 20160815
  53. LORAZEPAM. [Concomitant]
     Active Substance: LORAZEPAM
     Indication: SOMATIC SYMPTOM DISORDER
     Route: 048
     Dates: start: 20161219
  54. CODEINE PHOSPHATE [Concomitant]
     Active Substance: CODEINE PHOSPHATE
     Dosage: DOSAGE IS UNCERTAIN.
     Route: 048
     Dates: start: 20170119, end: 20170123
  55. DOGMATYL [Concomitant]
     Active Substance: SULPIRIDE
     Dosage: DOSAGE IS UNCERTAIN.
     Route: 065
     Dates: start: 20170131, end: 20170204
  56. MAGMITT [Concomitant]
     Active Substance: MAGNESIUM OXIDE
     Dosage: DOSAGE IS UNCERTAIN.
     Route: 048
     Dates: start: 20170123, end: 20170129

REACTIONS (1)
  - Osteoarthritis [Unknown]

NARRATIVE: CASE EVENT DATE: 20171108
